FAERS Safety Report 5488653-0 (Version None)
Quarter: 2007Q4

REPORT INFORMATION
  Report Type: 
  Country: None (occurrence: None)
  Receive Date: 20071017
  Receipt Date: 20070608
  Transmission Date: 20080405
  Serious: No
  Sender: FDA-Public Use
  Company Number: A0654861A

PATIENT
  Age: 2 Year
  Sex: Male
  Weight: 18.6 kg

DRUGS (5)
  1. CEFTIN [Suspect]
     Indication: OTITIS MEDIA ACUTE
     Dosage: 3ML TWICE PER DAY
     Route: 048
     Dates: start: 20070604
  2. ALBUTEROL [Concomitant]
  3. ZYRTEC [Concomitant]
  4. VITAMINS [Concomitant]
  5. MUCINEX [Concomitant]

REACTIONS (3)
  - ABDOMINAL PAIN UPPER [None]
  - MEDICATION ERROR [None]
  - VOMITING [None]
